FAERS Safety Report 8088168 (Version 3)
Quarter: 2012Q4

REPORT INFORMATION
  Report Type: 
  Country: US (occurrence: US)
  Receive Date: 20110812
  Receipt Date: 20121112
  Transmission Date: 20130627
  Serious: Yes (Other)
  Sender: FDA-Public Use
  Company Number: US-ROCHE-794810

PATIENT
  Age: 48 Year
  Sex: Female
  Weight: 74.91 kg

DRUGS (3)
  1. ACCUTANE [Suspect]
     Indication: ACNE
     Route: 048
     Dates: start: 200110, end: 200204
  2. EES [Concomitant]
     Route: 065
     Dates: start: 200102, end: 200112
  3. ALDACTONE [Concomitant]
     Route: 065
     Dates: start: 200102, end: 200112

REACTIONS (3)
  - Irritable bowel syndrome [Unknown]
  - Inflammatory bowel disease [Unknown]
  - Dry skin [Unknown]
